FAERS Safety Report 16219825 (Version 2)
Quarter: 2021Q4

REPORT INFORMATION
  Report Type: Spontaneous
  Country: ES (occurrence: ES)
  Receive Date: 20190420
  Receipt Date: 20211011
  Transmission Date: 20220303
  Serious: Yes (Death, Hospitalization, Other)
  Sender: FDA-Public Use
  Company Number: ES-AEMPS-477223

PATIENT
  Age: 83 Year
  Sex: Male

DRUGS (4)
  1. ASPIRIN [Interacting]
     Active Substance: ASPIRIN
     Indication: Prophylaxis
     Dosage: 300 MILLIGRAM, DAILY
     Route: 048
     Dates: start: 2006, end: 20181115
  2. CLOPIDOGREL [Interacting]
     Active Substance: CLOPIDOGREL BISULFATE
     Indication: Myocardial infarction
     Dosage: 75 MILLIGRAM, DAILY
     Route: 048
     Dates: start: 20181107, end: 20181115
  3. ENOXAPARIN SODIUM [Interacting]
     Active Substance: ENOXAPARIN SODIUM
     Indication: Myocardial infarction
     Dosage: 60 MILLIGRAM, DAILY
     Route: 058
     Dates: start: 20181109, end: 20181114
  4. HEPARIN SODIUM [Concomitant]
     Active Substance: HEPARIN SODIUM
     Indication: Myocardial infarction
     Dosage: UNK
     Route: 042
     Dates: start: 20181107, end: 20181109

REACTIONS (1)
  - Upper gastrointestinal haemorrhage [Fatal]

NARRATIVE: CASE EVENT DATE: 20181113
